FAERS Safety Report 9663854 (Version 1)
Quarter: 2013Q4

REPORT INFORMATION
  Report Type: Spontaneous
  Country: US (occurrence: None)
  Receive Date: 20131030
  Receipt Date: 20131030
  Transmission Date: 20140711
  Serious: Yes (Disabling)
  Sender: FDA-Public Use
  Company Number: None

PATIENT
  Age: 45 Year
  Sex: Male
  Weight: 99.79 kg

DRUGS (2)
  1. KENALOG [Suspect]
     Indication: INTERVERTEBRAL DISC PROTRUSION
  2. DEXAMETHASONE [Suspect]
     Indication: INTERVERTEBRAL DISC PROTRUSION

REACTIONS (3)
  - Meningitis [None]
  - Immune system disorder [None]
  - Sexual dysfunction [None]
